FAERS Safety Report 4800923-5 (Version None)
Quarter: 2005Q4

REPORT INFORMATION
  Report Type: 
  Country: None (occurrence: None)
  Receive Date: 20051011
  Receipt Date: 20050926
  Transmission Date: 20060501
  Serious: Yes (Life-Threatening, Hospitalization)
  Sender: FDA-Public Use
  Company Number: 2005P1000262

PATIENT
  Age: 76 Year
  Sex: Male

DRUGS (11)
  1. RETEVASE [Suspect]
     Indication: ACUTE MYOCARDIAL INFARCTION
     Dosage: IV
     Route: 042
     Dates: start: 20050621
  2. ABCIXIMAB (ABCIXIMAB) [Suspect]
     Indication: ACUTE MYOCARDIAL INFARCTION
     Dosage: IV
     Route: 042
     Dates: start: 20050621
  3. ASPIRIN [Concomitant]
  4. TICLOPIDINE HCL [Concomitant]
  5. DILATREND [Concomitant]
  6. SIMVASTATIN [Concomitant]
  7. PERINDOPRIL [Concomitant]
  8. ISOSORBIDE MONONITRATE [Concomitant]
  9. KETONAL [Concomitant]
  10. MORPHINE [Concomitant]
  11. NITROGLYCERIN [Concomitant]

REACTIONS (4)
  - CARDIAC ARREST [None]
  - CORONARY ARTERY DISEASE [None]
  - EJECTION FRACTION DECREASED [None]
  - VENTRICULAR FIBRILLATION [None]
